FAERS Safety Report 4335596-1 (Version None)
Quarter: 2004Q2

REPORT INFORMATION
  Report Type: 
  Country: None (occurrence: None)
  Receive Date: 20040406
  Receipt Date: 20040325
  Transmission Date: 20050107
  Serious: Yes (Hospitalization)
  Sender: FDA-Public Use
  Company Number: 04P-163-0254096-00

PATIENT
  Age: 65 Year
  Sex: Female

DRUGS (2)
  1. DILAUDID [Suspect]
     Indication: PAIN
     Dosage: SEE IMAGE
     Route: 024
     Dates: start: 20030101
  2. TICLOPIDINE HYDROCHLORIDE [Suspect]

REACTIONS (6)
  - LETHARGY [None]
  - MEDICAL DEVICE COMPLICATION [None]
  - MUSCLE SPASMS [None]
  - OVERDOSE [None]
  - RENAL FAILURE [None]
  - RHABDOMYOLYSIS [None]
